FAERS Safety Report 15634082 (Version 1)
Quarter: 2018Q4

REPORT INFORMATION
  Report Type: Spontaneous
  Country: US (occurrence: US)
  Receive Date: 20181119
  Receipt Date: 20181119
  Transmission Date: 20190205
  Serious: No
  Sender: FDA-Public Use
  Company Number: US-COLLEGIUM PHARMACEUTICAL, INC.-2018CGM00326

PATIENT
  Age: 45 Year
  Sex: Male
  Weight: 108.84 kg

DRUGS (5)
  1. XTAMPZA ER [Suspect]
     Active Substance: OXYCODONE
     Indication: BACK PAIN
  2. XTAMPZA ER [Suspect]
     Active Substance: OXYCODONE
     Indication: PAIN
     Dosage: 54 MG, 2X/DAY (EVERY 12 HOURS)
     Route: 048
     Dates: start: 20181017, end: 20181031
  3. OXYCODONE IR [Concomitant]
     Active Substance: OXYCODONE
     Dosage: FOR BREAKTHROUGH PAIN
  4. XTAMPZA ER [Suspect]
     Active Substance: OXYCODONE
     Indication: NECK PAIN
  5. TIZANIDINE. [Concomitant]
     Active Substance: TIZANIDINE
     Dosage: 4 MG, 2X/DAY (EVERY 12 HOURS)

REACTIONS (4)
  - Abdominal pain [Unknown]
  - Constipation [Unknown]
  - Withdrawal syndrome [Unknown]
  - Product substitution issue [Recovered/Resolved]

NARRATIVE: CASE EVENT DATE: 201810
